FAERS Safety Report 9738871 (Version 1)
Quarter: 2013Q4

REPORT INFORMATION
  Report Type: Spontaneous
  Country: US (occurrence: US)
  Receive Date: 20131209
  Receipt Date: 20131209
  Transmission Date: 20140711
  Serious: Yes (Hospitalization)
  Sender: FDA-Public Use
  Company Number: US-ACCORD-020602

PATIENT
  Age: 13 Year
  Sex: Male

DRUGS (1)
  1. QUETIAPINE FUMARATE [Suspect]
     Indication: AFFECTIVE DISORDER
     Dosage: 500 MG ON FOUR SEPARATE OCCASIONS

REACTIONS (4)
  - Drug abuse [Unknown]
  - Dyskinesia [Recovered/Resolved]
  - Myoclonus [Recovered/Resolved]
  - Akathisia [Recovered/Resolved]
